FAERS Safety Report 5311783-0 (Version None)
Quarter: 2007Q2

REPORT INFORMATION
  Report Type: 
  Country: None (occurrence: None)
  Receive Date: 20070430
  Receipt Date: 20060307
  Transmission Date: 20071010
  Serious: No
  Sender: FDA-Public Use
  Company Number: 2006UW03866

PATIENT
  Age: 78 Year
  Sex: Male
  Weight: 71.2 kg

DRUGS (3)
  1. NEXIUM [Suspect]
     Indication: GASTROOESOPHAGEAL REFLUX DISEASE
     Route: 048
     Dates: start: 20050701
  2. BLOOD PRESSURE PILLS [Concomitant]
  3. FLOMAX [Concomitant]

REACTIONS (2)
  - RASH PRURITIC [None]
  - SURGERY [None]
